FAERS Safety Report 7940086-0 (Version None)
Quarter: 2011Q4

REPORT INFORMATION
  Report Type: 
  Country: None (occurrence: None)
  Receive Date: 20111125
  Receipt Date: 20111116
  Transmission Date: 20120403
  Serious: Yes (Other)
  Sender: FDA-Public Use
  Company Number: PHEH2011US009604

PATIENT
  Sex: Female

DRUGS (5)
  1. CALCIUM D [Concomitant]
     Dosage: 1000 IU, UNK
  2. EYE DROPS [Concomitant]
  3. DILANTIN [Concomitant]
     Dosage: 2 DF (100 MG), PER DAY
  4. DIOVAN HCT [Suspect]
     Dosage: 1 DF (160/25 MG), ONCE A DAY
  5. FISH OIL [Concomitant]
     Dosage: 3 DF(1000 IU), PER DAY

REACTIONS (1)
  - ASTHMA [None]
